FAERS Safety Report 5005191-X (Version None)
Quarter: 2006Q2

REPORT INFORMATION
  Report Type: 
  Country: None (occurrence: None)
  Receive Date: 20060518
  Receipt Date: 20060509
  Transmission Date: 20061013
  Serious: Yes (Other)
  Sender: FDA-Public Use
  Company Number: US-JNJFOC-20050700760

PATIENT
  Sex: Female

DRUGS (3)
  1. REMICADE [Suspect]
     Indication: CROHN'S DISEASE
     Dosage: 3 VIALS
     Route: 042
  2. PENTASA [Concomitant]
     Indication: CROHN'S DISEASE
     Route: 048
  3. IMURAN [Concomitant]
     Indication: CROHN'S DISEASE
     Route: 048

REACTIONS (3)
  - ABDOMINAL PAIN [None]
  - AMNIOTIC FLUID VOLUME DECREASED [None]
  - DRUG EXPOSURE DURING PREGNANCY [None]
